FAERS Safety Report 7471553-4 (Version None)
Quarter: 2011Q2

REPORT INFORMATION
  Report Type: 
  Country: None (occurrence: None)
  Receive Date: 20110511
  Receipt Date: 20101018
  Transmission Date: 20111010
  Serious: Yes (Hospitalization, Other)
  Sender: FDA-Public Use
  Company Number: US-BAYER-201018393NA

PATIENT
  Age: 27 Year
  Sex: Female
  Weight: 61.224 kg

DRUGS (14)
  1. BACTRIM [Concomitant]
     Indication: URINARY TRACT INFECTION
     Dosage: UNK
     Dates: start: 20070223
  2. RITUXAN [Concomitant]
  3. PREVACID [Concomitant]
     Dosage: 300 MG, QD
     Route: 048
  4. YASMIN [Suspect]
     Dosage: UNK
     Dates: start: 20060216
  5. ZELNORM [Concomitant]
     Indication: ABDOMINAL PAIN
     Dosage: UNK
     Dates: start: 20070213
  6. EXCEDRIN (MIGRAINE) [Concomitant]
     Dosage: UNK
     Dates: start: 19980101
  7. QUESTRAN [Concomitant]
     Dosage: 4 MG, TID
  8. IMITREX [Concomitant]
     Dosage: UNK UNK, PRN
     Dates: start: 20030101, end: 20050101
  9. ZEGERID [Concomitant]
  10. NEXIUM [Concomitant]
  11. XIFAXAN [Concomitant]
     Dosage: 200 MG, TID
     Route: 048
  12. EFFEXOR [Concomitant]
  13. YASMIN [Suspect]
     Indication: PRODUCT USED FOR UNKNOWN INDICATION
     Route: 048
     Dates: start: 20060101, end: 20061101
  14. MOTRIN [Concomitant]
     Indication: CHEST PAIN

REACTIONS (6)
  - CHOLELITHIASIS [None]
  - CHOLECYSTITIS CHRONIC [None]
  - GALLBLADDER DISORDER [None]
  - NAUSEA [None]
  - BILIARY DYSKINESIA [None]
  - ABDOMINAL PAIN [None]
